FAERS Safety Report 7453971-3 (Version None)
Quarter: 2011Q2

REPORT INFORMATION
  Report Type: 
  Country: None (occurrence: None)
  Receive Date: 20110502
  Receipt Date: 20110426
  Transmission Date: 20111010
  Serious: Yes (Other)
  Sender: FDA-Public Use
  Company Number: US-ROCHE-574594

PATIENT
  Sex: Female
  Weight: 44.9 kg

DRUGS (1)
  1. ACCUTANE [Suspect]
     Indication: ACNE
     Route: 065
     Dates: start: 19981123, end: 19990309

REACTIONS (12)
  - ERYTHEMA [None]
  - ENDOMETRITIS [None]
  - POUCHITIS [None]
  - COLITIS ULCERATIVE [None]
  - OROPHARYNGEAL PAIN [None]
  - INFLAMMATORY BOWEL DISEASE [None]
  - COUGH [None]
  - DEPRESSION [None]
  - UPPER RESPIRATORY TRACT CONGESTION [None]
  - DYSMENORRHOEA [None]
  - OVARIAN CYST [None]
  - ANAEMIA [None]
